FAERS Safety Report 10170458 (Version 2)
Quarter: 2015Q2

REPORT INFORMATION
  Report Type: Spontaneous
  Country: DE (occurrence: DE)
  Receive Date: 20140513
  Receipt Date: 20150515
  Transmission Date: 20150821
  Serious: Yes (Other)
  Sender: FDA-Public Use
  Company Number: DE-PFIZER INC-2014130197

PATIENT
  Age: 60 Year
  Sex: Female

DRUGS (1)
  1. LYRICA [Suspect]
     Active Substance: PREGABALIN
     Indication: HERPES ZOSTER
     Dosage: 5 CAPSULES OF 150 MG IN THE EVENING AND FOLLOWING MORNING

REACTIONS (8)
  - Overdose [Unknown]
  - Haematoma [Unknown]
  - Restlessness [Unknown]
  - Muscular weakness [Unknown]
  - Drug prescribing error [Unknown]
  - Epilepsy [Unknown]
  - Hallucination [Unknown]
  - Vomiting [Unknown]

NARRATIVE: CASE EVENT DATE: 201404
